FAERS Safety Report 10272675 (Version 2)
Quarter: 2014Q3

REPORT INFORMATION
  Report Type: Report from Study
  Country: NL (occurrence: NL)
  Receive Date: 20140702
  Receipt Date: 20140929
  Transmission Date: 20150326
  Serious: Yes (Death, Hospitalization)
  Sender: FDA-Public Use
  Company Number: PHHY2014NL080652

PATIENT
  Age: 84 Year
  Sex: Male

DRUGS (1)
  1. ZOMETA [Suspect]
     Active Substance: ZOLEDRONIC ACID
     Indication: PROSTATE CANCER
     Dosage: 4 MG/100ML, EVERY 4 WEEKS
     Route: 042
     Dates: start: 201402, end: 201406

REACTIONS (5)
  - Metastases to liver [Fatal]
  - Malignant neoplasm progression [Fatal]
  - Abdominal distension [Fatal]
  - Prostate cancer [Fatal]
  - Dyspnoea [Fatal]

NARRATIVE: CASE EVENT DATE: 20140618
